FAERS Safety Report 8829855 (Version 1)
Quarter: 2012Q4

REPORT INFORMATION
  Report Type: Spontaneous
  Country: JP (occurrence: None)
  Receive Date: 20121004
  Receipt Date: 20121004
  Transmission Date: 20130627
  Serious: Yes (Other)
  Sender: FDA-Public Use
  Company Number: JP-2012-16354

PATIENT
  Sex: Male

DRUGS (3)
  1. PLETAAL [Suspect]
     Route: 048
     Dates: start: 20100618
  2. AMARYL [Concomitant]
  3. BASEN [Concomitant]

REACTIONS (1)
  - Road traffic accident [None]
